FAERS Safety Report 12991042 (Version 1)
Quarter: 2016Q4

REPORT INFORMATION
  Report Type: Spontaneous
  Country: ES (occurrence: ES)
  Receive Date: 20161201
  Receipt Date: 20161201
  Transmission Date: 20170207
  Serious: Yes (Other)
  Sender: FDA-Public Use
  Company Number: ES-FRESENIUS KABI-FK201608763

PATIENT
  Sex: Male
  Weight: 84 kg

DRUGS (3)
  1. FENTANILO [Suspect]
     Active Substance: FENTANYL
     Indication: GENERAL ANAESTHESIA
     Route: 042
     Dates: start: 20160307, end: 20160307
  2. ROCURONIO B.BRAUN [Suspect]
     Active Substance: ROCURONIUM BROMIDE
     Indication: GENERAL ANAESTHESIA
     Route: 042
     Dates: start: 20160307, end: 20160307
  3. PROPOFOL 1% FRESENIUS [Suspect]
     Active Substance: PROPOFOL
     Indication: GENERAL ANAESTHESIA
     Route: 042
     Dates: start: 20160307, end: 20160307

REACTIONS (2)
  - Anaphylactic shock [Recovered/Resolved]
  - Haemodynamic instability [None]

NARRATIVE: CASE EVENT DATE: 20160307
